FAERS Safety Report 9234911 (Version 1)
Quarter: 2013Q2

REPORT INFORMATION
  Report Type: Spontaneous
  Country: US (occurrence: US)
  Receive Date: 20130416
  Receipt Date: 20130416
  Transmission Date: 20140414
  Serious: Yes (Other)
  Sender: FDA-Public Use
  Company Number: US-009507513-1304USA004534

PATIENT
  Sex: Male

DRUGS (1)
  1. LOTRIMIN AF ATHLETE^S FOOT LIQUID SPRAY [Suspect]
     Indication: PRODUCT USED FOR UNKNOWN INDICATION
     Dosage: UNK, UNKNOWN
     Route: 061

REACTIONS (3)
  - Loss of consciousness [Recovered/Resolved]
  - Accidental exposure to product [Unknown]
  - Exposure via direct contact [Unknown]
